FAERS Safety Report 4820632-6 (Version None)
Quarter: 2005Q4

REPORT INFORMATION
  Report Type: 
  Country: None (occurrence: None)
  Receive Date: 20051104
  Receipt Date: 20051028
  Transmission Date: 20060501
  Serious: Yes (Hospitalization)
  Sender: FDA-Public Use
  Company Number: JP-JPN-A20052603

PATIENT
  Age: 49 Year
  Sex: Male

DRUGS (2)
  1. VALTREX [Suspect]
     Indication: HERPES ZOSTER
     Dosage: 2000MG PER DAY
     Route: 048
     Dates: start: 20020905
  2. ZOVIRAX [Concomitant]
     Indication: HERPES ZOSTER
     Dosage: 125MG THREE TIMES PER WEEK
     Route: 042
     Dates: start: 20050907

REACTIONS (7)
  - DEPRESSED LEVEL OF CONSCIOUSNESS [None]
  - DIFFICULTY IN WALKING [None]
  - DYSPHORIA [None]
  - GAIT DISTURBANCE [None]
  - HEADACHE [None]
  - NERVOUS SYSTEM DISORDER [None]
  - NUCHAL RIGIDITY [None]
